FAERS Safety Report 20103783 (Version 1)
Quarter: 2021Q4

REPORT INFORMATION
  Report Type: Spontaneous
  Country: US (occurrence: US)
  Receive Date: 20211123
  Receipt Date: 20211123
  Transmission Date: 20220303
  Serious: No
  Sender: FDA-Public Use
  Company Number: US-AMNEAL PHARMACEUTICALS-2021-AMRX-00111

PATIENT
  Sex: Male

DRUGS (3)
  1. ISOTRETINOIN [Suspect]
     Active Substance: ISOTRETINOIN
     Indication: Acne
     Dosage: 1 CAPSULES, QD
     Route: 048
  2. NEUTROGENA CLEAR PORE [Concomitant]
     Indication: Acne
     Dosage: UNK
     Route: 065
  3. DIFFERIN [Concomitant]
     Active Substance: ADAPALENE
     Indication: Acne
     Dosage: UNK ONCE NIGHTLY
     Route: 061

REACTIONS (3)
  - Therapeutic product effect incomplete [Unknown]
  - Vomiting [Unknown]
  - Nausea [Unknown]
